FAERS Safety Report 6256012-9 (Version None)
Quarter: 2009Q2

REPORT INFORMATION
  Report Type: 
  Country: None (occurrence: None)
  Receive Date: 20090630
  Receipt Date: 20090630
  Transmission Date: 20091009
  Serious: Yes (Other)
  Sender: FDA-Public Use
  Company Number: None

PATIENT
  Age: 21 Year
  Sex: Female
  Weight: 53.5244 kg

DRUGS (1)
  1. CREST PRO HEALTH TOOTHPASTE CREST [Suspect]
     Indication: DENTAL DISORDER PROPHYLAXIS
     Dosage: 2 TIMES DAILY DENTAL
     Route: 004

REACTIONS (2)
  - ANXIETY [None]
  - SALIVA ALTERED [None]
